FAERS Safety Report 8803376 (Version 1)
Quarter: 2012Q4

REPORT INFORMATION
  Report Type: 
  Country: GB (occurrence: GB)
  Receive Date: 20120924
  Receipt Date: 20120924
  Transmission Date: 20130627
  Serious: Yes (Congenital Anomaly, Other)
  Sender: FDA-Public Use
  Company Number: GB-PFIZER INC-2012231975

PATIENT
  Age: 1 Day
  Sex: Male
  Weight: 4.09 kg

DRUGS (2)
  1. SERTRALINE HCL [Suspect]
     Indication: OBSESSIVE-COMPULSIVE DISORDER
     Dosage: 150 mg, UNK
     Route: 064
  2. SERTRALINE HCL [Suspect]
     Indication: DEPRESSION

REACTIONS (3)
  - Maternal exposure timing unspecified [Not Recovered/Not Resolved]
  - Coloboma [Not Recovered/Not Resolved]
  - Congenital eye disorder [Not Recovered/Not Resolved]
